FAERS Safety Report 23774478 (Version 1)
Quarter: 2024Q2

REPORT INFORMATION
  Report Type: Spontaneous
  Country: CL (occurrence: CL)
  Receive Date: 20240423
  Receipt Date: 20240423
  Transmission Date: 20240715
  Serious: Yes (Other)
  Sender: FDA-Public Use
  Company Number: CL-FreseniusKabi-FK202406245

PATIENT
  Age: 54 Year
  Sex: Male
  Weight: 98 kg

DRUGS (7)
  1. LEUCOVORIN [Suspect]
     Active Substance: LEUCOVORIN\LEUCOVORIN CALCIUM
     Indication: Neoplasm malignant
     Dosage: APPLICATION- IV?STRENGTH: 100 MG?10TH CYCLE OF THE FOLFOX
     Dates: start: 20240409, end: 20240409
  2. LEUCOVORIN [Suspect]
     Active Substance: LEUCOVORIN\LEUCOVORIN CALCIUM
     Dosage: RESTARTED AT HALF THE INITIAL INFUSION RATE: LEUCOVORIN AT 145 ML/HOUR
     Dates: start: 20240409
  3. LEUCOVORIN [Suspect]
     Active Substance: LEUCOVORIN\LEUCOVORIN CALCIUM
     Dosage: INFUSION RATE ESCALATED TO THE INITIAL RATE: LEUCOVORIN AT 290 ML/HR
     Dates: start: 20240409
  4. OXALIPLATIN [Suspect]
     Active Substance: OXALIPLATIN
     Indication: Neoplasm malignant
     Dosage: APPLICATION- IV?STRENGTH: 100 MG?10TH CYCLE OF THE FOLFOX
     Dates: start: 20240409, end: 20240409
  5. OXALIPLATIN [Suspect]
     Active Substance: OXALIPLATIN
     Dosage: RESTARTED AT HALF THE INITIAL INFUSION RATE: OXALIPLATIN AT 133 ML/HOUR
     Dates: start: 20240409
  6. OXALIPLATIN [Suspect]
     Active Substance: OXALIPLATIN
     Dosage: INFUSION RATE ESCALATED TO THE INITIAL RATE: OXALIPLATIN AT 267 ML/HR
     Dates: start: 20240409
  7. FLUOROURACIL [Concomitant]
     Active Substance: FLUOROURACIL
     Indication: Neoplasm malignant
     Dosage: 10TH CYCLE OF THE FOLFOX
     Dates: start: 20240409, end: 20240409

REACTIONS (2)
  - Erythema [Recovered/Resolved]
  - Pruritus [Recovered/Resolved]

NARRATIVE: CASE EVENT DATE: 20240409
